FAERS Safety Report 7259927-8 (Version None)
Quarter: 2011Q1

REPORT INFORMATION
  Report Type: 
  Country: None (occurrence: None)
  Receive Date: 20110130
  Receipt Date: 20101005
  Transmission Date: 20110831
  Serious: No
  Sender: FDA-Public Use
  Company Number: US-ABBOTT-10P-163-0676324-00

PATIENT
  Sex: Female
  Weight: 90.8 kg

DRUGS (2)
  1. HUMIRA [Suspect]
     Indication: RHEUMATOID ARTHRITIS
     Route: 058
     Dates: start: 20101003
  2. HUMIRA [Suspect]
     Route: 058

REACTIONS (5)
  - SINUSITIS [None]
  - JOINT LOCK [None]
  - ARTHRALGIA [None]
  - OEDEMA PERIPHERAL [None]
  - ONYCHOMYCOSIS [None]
